FAERS Safety Report 24567204 (Version 1)
Quarter: 2024Q4

REPORT INFORMATION
  Report Type: Spontaneous
  Country: US (occurrence: US)
  Receive Date: 20241030
  Receipt Date: 20241030
  Transmission Date: 20250114
  Serious: Yes (Other)
  Sender: ELI LILLY AND COMPANY
  Company Number: US-ELI_LILLY_AND_COMPANY-US202410014449

PATIENT
  Age: 91 Year
  Sex: Female

DRUGS (4)
  1. JAYPIRCA [Suspect]
     Active Substance: PIRTOBRUTINIB
     Indication: Chronic lymphocytic leukaemia
     Dosage: UNK UNK, UNKNOWN
     Route: 065
     Dates: start: 202405, end: 202407
  2. VENCLEXTA [Concomitant]
     Active Substance: VENETOCLAX
     Indication: Product used for unknown indication
  3. CALQUENCE [Concomitant]
     Active Substance: ACALABRUTINIB
     Indication: Product used for unknown indication
  4. RALOXIFENE [Concomitant]
     Active Substance: RALOXIFENE
     Indication: Product used for unknown indication

REACTIONS (2)
  - Malignant neoplasm progression [Unknown]
  - Anaemia [Unknown]
